FAERS Safety Report 9387351 (Version 1)
Quarter: 2013Q3

REPORT INFORMATION
  Report Type: Spontaneous
  Country: US (occurrence: None)
  Receive Date: 20130703
  Receipt Date: 20130703
  Transmission Date: 20140515
  Serious: Yes (Other)
  Sender: FDA-Public Use
  Company Number: None

PATIENT
  Age: 68 Year
  Sex: Female
  Weight: 69.4 kg

DRUGS (1)
  1. ABILIFY [Suspect]
     Indication: TYPE 2 DIABETES MELLITUS
     Dates: start: 200808

REACTIONS (1)
  - Type 2 diabetes mellitus [None]
